FAERS Safety Report 4665549-5 (Version None)
Quarter: 2005Q2

REPORT INFORMATION
  Report Type: 
  Country: None (occurrence: None)
  Receive Date: 20050518
  Receipt Date: 20050518
  Transmission Date: 20051028
  Serious: Yes (Hospitalization)
  Sender: FDA-Public Use
  Company Number: None

PATIENT
  Age: 43 Year
  Sex: Female
  Weight: 57 kg

DRUGS (23)
  1. RITUXIMAB [Suspect]
     Indication: GRAFT VERSUS HOST DISEASE
     Dosage: 375 MG/M2 , 1/WEEK X4 IV
     Route: 042
     Dates: start: 20040720, end: 20040810
  2. FOSAMAX [Concomitant]
  3. CELLCEPT [Concomitant]
  4. ACYCLOVIR [Concomitant]
  5. BETAMETHASONE [Concomitant]
  6. ELIDEL [Concomitant]
  7. METHADONE [Concomitant]
  8. NEXIUM [Concomitant]
  9. K-DUR 10 [Concomitant]
  10. BACTRIM [Concomitant]
  11. MAGNESIUM [Concomitant]
  12. AMITRIPTYLINE [Concomitant]
  13. PREDNISONE TAB [Concomitant]
  14. LASIX [Concomitant]
  15. LEXAPRO [Concomitant]
  16. ZOFRAN [Concomitant]
  17. VALTREX [Concomitant]
  18. CALCIUM CARBONATE/VITD [Concomitant]
  19. NORVASC [Concomitant]
  20. RAPAMUNE [Concomitant]
  21. OXYCODONE HCL [Concomitant]
  22. NEUTRA-PHOS [Concomitant]
  23. OXYCONTIN [Concomitant]

REACTIONS (8)
  - DEHYDRATION [None]
  - DIARRHOEA [None]
  - DRUG ABUSER [None]
  - HYPERKALAEMIA [None]
  - HYPONATRAEMIA [None]
  - ORAL INTAKE REDUCED [None]
  - PAIN [None]
  - RENAL FAILURE [None]
